FAERS Safety Report 23587107 (Version 1)
Quarter: 2024Q1

REPORT INFORMATION
  Report Type: Spontaneous
  Country: US (occurrence: None)
  Receive Date: 20240301
  Receipt Date: 20240301
  Transmission Date: 20240409
  Serious: No
  Sender: FDA-Public Use
  Company Number: None

PATIENT
  Sex: 0

DRUGS (4)
  1. POTASSIUM CHLORIDE [Suspect]
     Active Substance: POTASSIUM CHLORIDE
     Route: 041
  2. POTASSIUM CHLORIDE [Suspect]
     Active Substance: POTASSIUM CHLORIDE
     Route: 041
  3. KCl 10 mEq/100 mL [Concomitant]
  4. KCl 40 mEq/100 mL [Concomitant]

REACTIONS (1)
  - Product label confusion [None]

NARRATIVE: CASE EVENT DATE: 20240301
